FAERS Safety Report 16995955 (Version 2)
Quarter: 2020Q4

REPORT INFORMATION
  Report Type: Spontaneous
  Country: IN (occurrence: IN)
  Receive Date: 20191105
  Receipt Date: 20201013
  Transmission Date: 20210113
  Serious: Yes (Other)
  Sender: FDA-Public Use
  Company Number: IN-SUN PHARMACEUTICAL INDUSTRIES LTD-2019R1-226100

PATIENT
  Age: 33 Year
  Sex: Male

DRUGS (2)
  1. CYPROHEPTADINE. [Suspect]
     Active Substance: CYPROHEPTADINE
     Indication: PRODUCT USED FOR UNKNOWN INDICATION
     Dosage: UNK (4 MG)
     Route: 065
  2. DEXAMETHASONE. [Suspect]
     Active Substance: DEXAMETHASONE
     Indication: PRODUCT USED FOR UNKNOWN INDICATION
     Dosage: UNK (0.5 MG)
     Route: 065

REACTIONS (4)
  - Product prescribing error [Unknown]
  - Quadriparesis [Recovered/Resolved]
  - Hypokalaemia [Recovered/Resolved]
  - Paralysis [Unknown]
